FAERS Safety Report 9749812 (Version 1)
Quarter: 2013Q4

REPORT INFORMATION
  Report Type: Spontaneous
  Country: FR (occurrence: FR)
  Receive Date: 20131212
  Receipt Date: 20131212
  Transmission Date: 20140711
  Serious: Yes (Death)
  Sender: FDA-Public Use
  Company Number: FR-B.I. PHARMACEUTICALS,INC./RIDGEFIELD-2013-BI-41727FF

PATIENT
  Sex: Male

DRUGS (11)
  1. PRADAXA [Suspect]
     Indication: ATRIAL FIBRILLATION
     Dosage: 220 MG
     Route: 048
     Dates: start: 20121011
  2. KARDEGIC 75 [Concomitant]
  3. OMBREZ 150 [Concomitant]
  4. SPIRIVA [Concomitant]
  5. MIFLASONE [Concomitant]
  6. LASILIX [Concomitant]
     Dosage: 80 MG
  7. RAMIPRIL 2.5MG [Concomitant]
  8. CRESTOR 5 [Concomitant]
  9. AMIODARONE 200 [Concomitant]
  10. SPIRONOLACTONE 25 [Concomitant]
  11. O2 [Concomitant]

REACTIONS (1)
  - Haemorrhage [Fatal]
